FAERS Safety Report 9907629 (Version 1)
Quarter: 2014Q1

REPORT INFORMATION
  Report Type: Spontaneous
  Country: US (occurrence: US)
  Receive Date: 20140219
  Receipt Date: 20140219
  Transmission Date: 20141002
  Serious: No
  Sender: FDA-Public Use
  Company Number: US-009507513-1402USA008278

PATIENT
  Age: 68 Year
  Sex: Female

DRUGS (9)
  1. JANUVIA [Suspect]
     Dosage: UNK
     Route: 048
     Dates: start: 201201
  2. AMLODIPINE [Concomitant]
  3. FUROSEMIDE [Concomitant]
     Route: 048
  4. METFORMIN [Concomitant]
  5. GLIPIZIDE [Concomitant]
  6. PRAVASTATIN SODIUM [Concomitant]
  7. OXYBUTYNIN [Concomitant]
  8. LORAZEPAM [Concomitant]
  9. COZAAR [Concomitant]
     Route: 048

REACTIONS (3)
  - Drug ineffective [Unknown]
  - Medication residue present [Unknown]
  - Medication residue present [Unknown]
